FAERS Safety Report 15608605 (Version 2)
Quarter: 2019Q2

REPORT INFORMATION
  Report Type: Spontaneous
  Country: JP (occurrence: JP)
  Receive Date: 20181112
  Receipt Date: 20190503
  Transmission Date: 20190711
  Serious: Yes (Other)
  Sender: FDA-Public Use
  Company Number: JP-SA-2018SA306535

PATIENT
  Age: 79 Year
  Sex: Male

DRUGS (4)
  1. OXALIPLATIN. [Suspect]
     Active Substance: OXALIPLATIN
     Indication: RECTAL CANCER
     Dosage: UNK UNK, QD
     Route: 041
  2. VECTIBIX [Concomitant]
     Active Substance: PANITUMUMAB
  3. LEVOFOLINATE CALCIUM [Concomitant]
     Active Substance: LEVOLEUCOVORIN CALCIUM
  4. 5-FU [FLUOROURACIL] [Concomitant]
     Active Substance: FLUOROURACIL

REACTIONS (3)
  - Oesophageal varices haemorrhage [Unknown]
  - Venoocclusive liver disease [Unknown]
  - Portal hypertension [Unknown]
